FAERS Safety Report 7331124-7 (Version None)
Quarter: 2011Q1

REPORT INFORMATION
  Report Type: 
  Country: None (occurrence: None)
  Receive Date: 20110224
  Receipt Date: 20110209
  Transmission Date: 20110831
  Serious: Yes (Death)
  Sender: FDA-Public Use
  Company Number: 2011000657

PATIENT
  Age: 61 Year

DRUGS (1)
  1. ERLOTINIB (ERLOTINIB) (TABLET)(ERLOTINIB) [Suspect]
     Indication: NON-SMALL CELL LUNG CANCER
     Dosage: (150 MG, 1 X PER 1 DAY), ORAL
     Route: 048
     Dates: start: 20101117, end: 20110203

REACTIONS (1)
  - DEATH [None]
